FAERS Safety Report 16624762 (Version 3)
Quarter: 2019Q3

REPORT INFORMATION
  Report Type: Spontaneous
  Country: BR (occurrence: BR)
  Receive Date: 20190724
  Receipt Date: 20190805
  Transmission Date: 20191004
  Serious: Yes (Other)
  Sender: FDA-Public Use
  Company Number: BR-PFIZER INC-2019306788

PATIENT
  Age: 56 Year
  Sex: Female
  Weight: 120 kg

DRUGS (15)
  1. ANCORON [Concomitant]
     Active Substance: AMIODARONE HYDROCHLORIDE
     Dosage: UNK
  2. CARMELLOSE SODIUM [Concomitant]
     Active Substance: CARBOXYMETHYLCELLULOSE SODIUM
     Dosage: UNK
  3. ALOPURINOL [Suspect]
     Active Substance: ALLOPURINOL
     Dosage: UNK
     Route: 065
  4. FLUXTAR [Concomitant]
     Dosage: UNK
  5. AMILORIDE HCL/HYDROCHLOORTHIAZIDE MERCK [Concomitant]
     Dosage: UNK
  6. CANDESARTAN SANDOZ [Suspect]
     Active Substance: CANDESARTAN
     Indication: HYPERTENSION
     Dosage: 16 MILLIGRAM, QD
     Route: 048
  7. PANTOPRAZOLE [Concomitant]
     Active Substance: PANTOPRAZOLE
     Dosage: UNK
  8. VASTAREL [Concomitant]
     Active Substance: TRIMETAZIDINE DIHYDROCHLORIDE
     Dosage: UNK
  9. BISOPROLOL HEMIFUMARATE [Concomitant]
     Active Substance: BISOPROLOL FUMARATE
     Dosage: UNK
  10. BUDESONIDE. [Concomitant]
     Active Substance: BUDESONIDE
     Dosage: UNK
  11. AMLODIPINE BESILATE [Suspect]
     Active Substance: AMLODIPINE BESYLATE
     Dosage: UNK, 2X/DAY
     Route: 065
  12. ROSUVASTATINA CALCICA [Suspect]
     Active Substance: ROSUVASTATIN CALCIUM
     Indication: BLOOD CHOLESTEROL INCREASED
     Dosage: 10 MILLIGRAM, BID
     Route: 048
  13. CIMELIDE [Concomitant]
     Active Substance: NIMESULIDE
     Dosage: UNK
  14. PANTOPRAZOLE [Suspect]
     Active Substance: PANTOPRAZOLE
     Dosage: UNK
     Route: 065
  15. ASPIRIN [ACETYLSALICYLIC ACID] [Concomitant]
     Active Substance: ASPIRIN
     Dosage: UNK

REACTIONS (9)
  - Vision blurred [Unknown]
  - Wheezing [Not Recovered/Not Resolved]
  - Skin mass [Recovered/Resolved with Sequelae]
  - Cardiac disorder [Unknown]
  - Arthropod bite [Recovered/Resolved]
  - Peau d^orange [Recovered/Resolved]
  - Cataract [Unknown]
  - Choking [Not Recovered/Not Resolved]
  - Condition aggravated [Unknown]

NARRATIVE: CASE EVENT DATE: 201905
